FAERS Safety Report 4332785-7 (Version None)
Quarter: 2004Q2

REPORT INFORMATION
  Report Type: 
  Country: None (occurrence: None)
  Receive Date: 20040406
  Receipt Date: 20040302
  Transmission Date: 20050107
  Serious: Yes (Other)
  Sender: FDA-Public Use
  Company Number: PHBS2004AT03114

PATIENT

DRUGS (1)
  1. SANDOSTATIN LAR [Suspect]
     Route: 065

REACTIONS (1)
  - PANCREATIC INSUFFICIENCY [None]
